FAERS Safety Report 5234270-7 (Version None)
Quarter: 2007Q1

REPORT INFORMATION
  Report Type: 
  Country: None (occurrence: None)
  Receive Date: 20070209
  Receipt Date: 20070131
  Transmission Date: 20070707
  Serious: Yes (Hospitalization, Other)
  Sender: FDA-Public Use
  Company Number: SE-NOVOPROD-258666

PATIENT
  Sex: Female
  Weight: 62.7 kg

DRUGS (6)
  1. ACTIVELLE [Suspect]
     Indication: MENOPAUSAL SYMPTOMS
     Dosage: .5 MG, QD
     Route: 048
     Dates: start: 20040929, end: 20050531
  2. ACTIVELLE [Suspect]
     Dosage: 1 MG, EVERY 2ND DAY
     Route: 048
     Dates: start: 20050401, end: 20061001
  3. NORMORIX [Concomitant]
     Indication: HYPERTENSION
     Dates: start: 20041206, end: 20041208
  4. NAPROXEN [Concomitant]
     Indication: RHEUMATOID ARTHRITIS
     Dates: start: 20020101
  5. MAGNECYL [Concomitant]
     Indication: HEADACHE
     Dates: start: 20041129, end: 20041202
  6. MAGNECYL [Concomitant]
     Dates: start: 20041201

REACTIONS (1)
  - BREAST CANCER [None]
